FAERS Safety Report 6283240-9 (Version None)
Quarter: 2009Q3

REPORT INFORMATION
  Report Type: 
  Country: None (occurrence: None)
  Receive Date: 20090724
  Receipt Date: 20090722
  Transmission Date: 20100115
  Serious: Yes (Hospitalization)
  Sender: FDA-Public Use
  Company Number: GB-ABBOTT-09P-167-0586579-00

PATIENT
  Sex: Male

DRUGS (9)
  1. VALPROATE SODIUM [Suspect]
     Indication: DRUG USE FOR UNKNOWN INDICATION
  2. VALPROATE SODIUM [Interacting]
     Dates: start: 20060810, end: 20090206
  3. CLOZARIL [Interacting]
     Indication: SCHIZOPHRENIA, PARANOID TYPE
     Route: 048
     Dates: start: 20090309
  4. CLOZARIL [Interacting]
     Indication: OBSESSIVE-COMPULSIVE DISORDER
     Route: 048
     Dates: start: 20060810, end: 20090206
  5. CLOZARIL [Interacting]
     Route: 048
     Dates: start: 20081101, end: 20090201
  6. FLUVOXAMINE MALEATE [Interacting]
     Indication: DRUG USE FOR UNKNOWN INDICATION
     Route: 065
  7. FYBOGEL [Concomitant]
     Indication: DRUG USE FOR UNKNOWN INDICATION
     Route: 065
  8. NULYTELY [Concomitant]
     Indication: DRUG USE FOR UNKNOWN INDICATION
     Route: 065
  9. OMEPRAZOLE [Concomitant]
     Indication: GASTROOESOPHAGEAL REFLUX DISEASE
     Route: 048

REACTIONS (13)
  - ANTIPSYCHOTIC DRUG LEVEL INCREASED [None]
  - BLOOD SODIUM INCREASED [None]
  - BLOOD UREA INCREASED [None]
  - DIZZINESS [None]
  - DRUG INTERACTION [None]
  - FACE OEDEMA [None]
  - HAEMORRHOIDS [None]
  - HEART RATE DECREASED [None]
  - MENTAL IMPAIRMENT [None]
  - PSYCHOTIC DISORDER [None]
  - RENAL IMPAIRMENT [None]
  - SOMNOLENCE [None]
  - TREATMENT NONCOMPLIANCE [None]
